FAERS Safety Report 16668185 (Version 2)
Quarter: 2019Q3

REPORT INFORMATION
  Report Type: Report from Study
  Country: BR (occurrence: BR)
  Receive Date: 20190805
  Receipt Date: 20190823
  Transmission Date: 20191004
  Serious: Yes (Life-Threatening, Other)
  Sender: FDA-Public Use
  Company Number: PHHY2019BR181412

PATIENT
  Sex: Female

DRUGS (1)
  1. ENTRESTO [Suspect]
     Active Substance: SACUBITRIL\VALSARTAN
     Indication: PRODUCT USED FOR UNKNOWN INDICATION
     Dosage: 0.5 DF, BID (100 MG HALF (SACUBITRIL 49 MG, VALSARTAN 51 MG), BID)
     Route: 065
     Dates: start: 20180720

REACTIONS (13)
  - Diabetes mellitus [Unknown]
  - Wrong technique in product usage process [Unknown]
  - Dyspnoea [Unknown]
  - Fall [Unknown]
  - Stress [Unknown]
  - Malaise [Unknown]
  - Feeling abnormal [Unknown]
  - Feeling hot [Unknown]
  - Product prescribing error [Unknown]
  - Blood pressure decreased [Unknown]
  - Fatigue [Unknown]
  - Dizziness [Unknown]
  - Peripheral swelling [Unknown]
